FAERS Safety Report 11639732 (Version 3)
Quarter: 2015Q4

REPORT INFORMATION
  Report Type: Other
  Country: GB (occurrence: GB)
  Receive Date: 20151019
  Receipt Date: 20151116
  Transmission Date: 20160304
  Serious: Yes (Hospitalization, Other)
  Sender: FDA-Public Use
  Company Number: GB-MYLANLABS-2015M1034183

PATIENT

DRUGS (2)
  1. ALIMTA [Suspect]
     Active Substance: PEMETREXED DISODIUM
     Indication: LUNG ADENOCARCINOMA METASTATIC
     Dosage: 975 MG, CYCLE
     Dates: start: 20130822
  2. CISPLATIN. [Suspect]
     Active Substance: CISPLATIN
     Indication: LUNG ADENOCARCINOMA METASTATIC
     Dosage: 146 MG, CYCLICAL
     Dates: start: 20130822

REACTIONS (7)
  - Hypoalbuminaemia [Unknown]
  - Hyperkalaemia [Unknown]
  - Oedema peripheral [Recovering/Resolving]
  - Deep vein thrombosis [Unknown]
  - Acute kidney injury [Unknown]
  - Pulmonary embolism [Unknown]
  - Malaise [Unknown]

NARRATIVE: CASE EVENT DATE: 2013
